FAERS Safety Report 24446885 (Version 3)
Quarter: 2024Q4

REPORT INFORMATION
  Report Type: Spontaneous
  Country: JP (occurrence: JP)
  Receive Date: 20241016
  Receipt Date: 20241206
  Transmission Date: 20250114
  Serious: Yes (Hospitalization, Other)
  Sender: MERCK
  Company Number: JP-BAYER-2024A143718

PATIENT
  Age: 80 Year
  Sex: Female
  Weight: 46.1 kg

DRUGS (24)
  1. VERICIGUAT [Suspect]
     Active Substance: VERICIGUAT
     Indication: Cardiac failure chronic
     Dosage: DAILY DOSE 2.5 MG
     Route: 048
     Dates: start: 20240515, end: 20240730
  2. VERICIGUAT [Suspect]
     Active Substance: VERICIGUAT
     Dosage: DAILY DOSE 5 MG
     Route: 048
     Dates: start: 20240731
  3. JARDIANCE [Suspect]
     Active Substance: EMPAGLIFLOZIN
     Dosage: DAILY DOSE 10 MG
     Route: 048
     Dates: start: 20240323, end: 20240724
  4. ROSUVASTATIN [Concomitant]
     Active Substance: ROSUVASTATIN
     Dosage: DAILY DOSE 5 MG
     Route: 048
  5. LANSOPRAZOLE [Concomitant]
     Active Substance: LANSOPRAZOLE
     Indication: Prophylaxis
     Dosage: DAILY DOSE 15 MG
  6. DIGOXIN [Concomitant]
     Active Substance: DIGOXIN
     Dosage: DAILY DOSE 0.03 MG
     Route: 048
     Dates: start: 20240612, end: 20240724
  7. AZOSEMIDE [Concomitant]
     Active Substance: AZOSEMIDE
     Dosage: DAILY DOSE 30 MG
     Route: 048
     Dates: start: 20240320, end: 20240325
  8. AZOSEMIDE [Concomitant]
     Active Substance: AZOSEMIDE
     Dosage: DAILY DOSE 30 MG
     Route: 048
     Dates: start: 20240604, end: 20240724
  9. AZOSEMIDE [Concomitant]
     Active Substance: AZOSEMIDE
     Dosage: DAILY DOSE 30 MG
     Route: 048
     Dates: start: 20240813, end: 20240819
  10. AZOSEMIDE [Concomitant]
     Active Substance: AZOSEMIDE
     Dosage: DAILY DOSE 15 MG
     Route: 048
     Dates: start: 20240930
  11. EDOXABAN TOSYLATE [Concomitant]
     Active Substance: EDOXABAN TOSYLATE
     Dosage: DAILY DOSE 30 MG
     Route: 048
     Dates: start: 20240322, end: 20240611
  12. EDOXABAN TOSYLATE [Concomitant]
     Active Substance: EDOXABAN TOSYLATE
     Dosage: DAILY DOSE 15 MG
     Route: 048
     Dates: start: 20240612
  13. BISOPROLOL [Concomitant]
     Active Substance: BISOPROLOL
     Dosage: DAILY DOSE 0.63 MG
     Route: 048
     Dates: start: 20240329, end: 20240402
  14. BISOPROLOL [Concomitant]
     Active Substance: BISOPROLOL
     Dosage: DAILY DOSE 1.25 MG
     Route: 048
     Dates: start: 20240403, end: 20240414
  15. BISOPROLOL [Concomitant]
     Active Substance: BISOPROLOL
     Dosage: DAILY DOSE 1.88 MG
     Route: 048
     Dates: start: 20240415, end: 20240806
  16. BISOPROLOL [Concomitant]
     Active Substance: BISOPROLOL
     Dosage: DAILY DOSE 2.5 MG
     Route: 048
     Dates: start: 20240807
  17. ENTRESTO [Concomitant]
     Active Substance: SACUBITRIL\VALSARTAN
     Dosage: DAILY DOSE 100 MG
     Route: 048
     Dates: start: 20240403, end: 20240701
  18. PIMOBENDAN [Concomitant]
     Active Substance: PIMOBENDAN
     Dosage: DAILY DOSE 2.5 MG
     Route: 048
     Dates: start: 20240612
  19. LOSARTAN POTASSIUM [Concomitant]
     Active Substance: LOSARTAN POTASSIUM
     Dosage: DAILY DOSE 25 MG
     Route: 048
     Dates: start: 20240702, end: 20240724
  20. LOSARTAN POTASSIUM [Concomitant]
     Active Substance: LOSARTAN POTASSIUM
     Dosage: DAILY DOSE 25 MG
     Route: 048
     Dates: start: 20240801, end: 20240819
  21. ACETAMINOPHEN\APRONALIDE\CAFFEINE\PROPYPHENAZONE [Concomitant]
     Active Substance: ACETAMINOPHEN\APRONALIDE\CAFFEINE\PROPYPHENAZONE
     Indication: Migraine
     Dosage: DAILY DOSE 1 G
     Route: 048
     Dates: start: 20240902
  22. PREGABALIN [Concomitant]
     Active Substance: PREGABALIN
     Indication: Migraine
     Dosage: DAILY DOSE 25 MG
     Route: 048
     Dates: start: 20240819
  23. PREGABALIN [Concomitant]
     Active Substance: PREGABALIN
     Indication: Neuralgia
  24. SPIRONOLACTONE [Concomitant]
     Active Substance: SPIRONOLACTONE
     Dosage: DAILY DOSE 25 MG
     Route: 048
     Dates: start: 20240930

REACTIONS (5)
  - Pyelonephritis [Recovering/Resolving]
  - Urinary tract infection [Recovering/Resolving]
  - Cardiac failure chronic [Recovered/Resolved]
  - Cardiac failure chronic [Recovering/Resolving]
  - Hyperuricaemia [Recovered/Resolved]

NARRATIVE: CASE EVENT DATE: 20240515
